FAERS Safety Report 6062157-9 (Version None)
Quarter: 2009Q1

REPORT INFORMATION
  Report Type: 
  Country: None (occurrence: None)
  Receive Date: 20090203
  Receipt Date: 20090130
  Transmission Date: 20090719
  Serious: Yes (Hospitalization)
  Sender: FDA-Public Use
  Company Number: HK-BAYER-200911690GPV

PATIENT
  Age: 20 Year
  Sex: Female

DRUGS (3)
  1. BETAFERON [Suspect]
     Indication: MULTIPLE SCLEROSIS
     Route: 058
     Dates: start: 20071005, end: 20080401
  2. BETAFERON [Suspect]
     Route: 058
     Dates: start: 20090119
  3. MITOXANTRONE [Concomitant]
     Indication: DRUG USE FOR UNKNOWN INDICATION

REACTIONS (4)
  - HEADACHE [None]
  - HYPOAESTHESIA [None]
  - NO ADVERSE EVENT [None]
  - PYREXIA [None]
